FAERS Safety Report 7709643-0 (Version None)
Quarter: 2011Q3

REPORT INFORMATION
  Report Type: 
  Country: None (occurrence: None)
  Receive Date: 20110825
  Receipt Date: 20110520
  Transmission Date: 20111222
  Serious: Yes (Hospitalization)
  Sender: FDA-Public Use
  Company Number: US-GLAXOSMITHKLINE-A0929591A

PATIENT
  Age: 53 Year
  Sex: Female

DRUGS (1)
  1. TYKERB [Suspect]
     Indication: BREAST CANCER
     Dosage: 1250MG CYCLIC
     Route: 065

REACTIONS (5)
  - GAIT DISTURBANCE [None]
  - NERVOUS SYSTEM DISORDER [None]
  - SURGERY [None]
  - AMNESIA [None]
  - BRAIN OPERATION [None]
